FAERS Safety Report 8534494-7 (Version None)
Quarter: 2012Q3

REPORT INFORMATION
  Report Type: 
  Country: None (occurrence: None)
  Receive Date: 20120724
  Receipt Date: 20120716
  Transmission Date: 20120928
  Serious: Yes (Death, Hospitalization)
  Sender: FDA-Public Use
  Company Number: US-BAYER-2010-003626

PATIENT
  Age: 67 Year
  Sex: Female
  Weight: 64.5 kg

DRUGS (1)
  1. NEXAVAR [Suspect]
     Indication: HEPATIC NEOPLASM MALIGNANT
     Dosage: 800 MG, UNK
     Route: 048
     Dates: start: 20101123, end: 20101206

REACTIONS (4)
  - NAUSEA [None]
  - HEPATIC NEOPLASM MALIGNANT [None]
  - VOMITING [None]
  - RENAL FAILURE [None]
